FAERS Safety Report 8515854-7 (Version None)
Quarter: 2012Q3

REPORT INFORMATION
  Report Type: 
  Country: None (occurrence: None)
  Receive Date: 20120705
  Receipt Date: 20120620
  Transmission Date: 20120928
  Serious: Yes (Hospitalization)
  Sender: FDA-Public Use
  Company Number: DSA_58139_2012

PATIENT
  Age: 78 Year
  Sex: Female

DRUGS (15)
  1. ALLOPURINOL [Concomitant]
  2. LANTUS [Concomitant]
  3. RANITIDINE HCL [Concomitant]
  4. MODURETIC 5-50 [Concomitant]
  5. ENOXAPARIN SODIUM [Concomitant]
  6. ZOLOFT [Concomitant]
  7. LEVOFLOXACIN [Concomitant]
  8. EN [Concomitant]
  9. PLAVIX [Concomitant]
  10. DEURSIL [Concomitant]
  11. ADALAT [Concomitant]
  12. ENALAPRIL MALEATE [Suspect]
     Indication: HYPERTENSION
     Dosage: (10 MG QD ORAL)
     Route: 048
     Dates: start: 20080101, end: 20120527
  13. SIMVASTATIN [Concomitant]
  14. LEVOTHYROXINE SODIUM [Concomitant]
  15. HUMALOG [Concomitant]

REACTIONS (2)
  - HYPOGLYCAEMIA [None]
  - RENAL FAILURE ACUTE [None]
